FAERS Safety Report 19967637 (Version 1)
Quarter: 2021Q4

REPORT INFORMATION
  Report Type: Spontaneous
  Country: TN (occurrence: TN)
  Receive Date: 20211019
  Receipt Date: 20211019
  Transmission Date: 20220303
  Serious: Yes (Other)
  Sender: FDA-Public Use
  Company Number: TN-ALKEM LABORATORIES LIMITED-TN-ALKEM-2021-06322

PATIENT
  Age: 10 Year
  Sex: Male

DRUGS (4)
  1. LAMOTRIGINE [Suspect]
     Active Substance: LAMOTRIGINE
     Indication: Idiopathic generalised epilepsy
     Dosage: 5 MILLIGRAM/KILOGRAM, QD
     Route: 065
  2. LAMOTRIGINE [Suspect]
     Active Substance: LAMOTRIGINE
     Dosage: 9 MILLIGRAM/KILOGRAM, QD
     Route: 065
  3. VALPROATE [Suspect]
     Active Substance: VALPROIC ACID
     Indication: Idiopathic generalised epilepsy
     Dosage: 30 MILLIGRAM/KILOGRAM, QD
     Route: 065
  4. ETHOSUXIMIDE [Concomitant]
     Active Substance: ETHOSUXIMIDE
     Indication: Idiopathic generalised epilepsy
     Dosage: 30 MILLIGRAM, QD
     Route: 065

REACTIONS (4)
  - Opsoclonus myoclonus [Unknown]
  - Toxicity to various agents [Unknown]
  - Drug interaction [Unknown]
  - Behaviour disorder [Unknown]
